FAERS Safety Report 7432182-1 (Version None)
Quarter: 2011Q2

REPORT INFORMATION
  Report Type: 
  Country: None (occurrence: None)
  Receive Date: 20110422
  Receipt Date: 20110408
  Transmission Date: 20111010
  Serious: Yes (Death)
  Sender: FDA-Public Use
  Company Number: CA-CELGENEUS-028-21880-11040967

PATIENT
  Age: 49 Year
  Sex: Female

DRUGS (1)
  1. REVLIMID [Suspect]
     Route: 048

REACTIONS (1)
  - DEATH [None]
